FAERS Safety Report 4978472-3 (Version None)
Quarter: 2006Q1

REPORT INFORMATION
  Report Type: 
  Country: None (occurrence: None)
  Receive Date: 20060227
  Receipt Date: 20050805
  Transmission Date: 20060701
  Serious: Yes (Life-Threatening, Hospitalization, Other)
  Sender: FDA-Public Use
  Company Number: WAES 0508USA01431

PATIENT
  Sex: Female

DRUGS (2)
  1. ZOCOR [Suspect]
     Indication: LOW DENSITY LIPOPROTEIN INCREASED
     Dosage: 80 MG/DAILY/PO
     Route: 048
     Dates: start: 20050705
  2. ZOCOR [Suspect]
     Indication: LOW DENSITY LIPOPROTEIN INCREASED
     Dosage: 40MG/DAILY/PO
     Route: 048
     Dates: end: 20050704

REACTIONS (3)
  - DEHYDRATION [None]
  - NAUSEA [None]
  - RHABDOMYOLYSIS [None]
